FAERS Safety Report 5067262-1 (Version None)
Quarter: 2006Q3

REPORT INFORMATION
  Report Type: 
  Country: None (occurrence: None)
  Receive Date: 20060727
  Receipt Date: 20060713
  Transmission Date: 20061208
  Serious: Yes (Hospitalization)
  Sender: FDA-Public Use
  Company Number: 14389

PATIENT
  Age: 62 Year
  Sex: Male

DRUGS (11)
  1. DOXORUBICIN HCL [Suspect]
     Dosage: 100 MG DAILY IV
     Route: 042
     Dates: start: 20060527, end: 20060528
  2. VINCRISTINE [Suspect]
     Dosage: 2 MG DAILY IV
     Route: 042
     Dates: start: 20060527, end: 20060527
  3. CYCLOPHOSPHAMIDE [Suspect]
     Dosage: 620 MG BID IV
     Route: 042
     Dates: start: 20060524, end: 20060526
  4. DEXAMETHASONE [Concomitant]
  5. NEUPOGEN [Concomitant]
  6. FLUCONAZOLE [Concomitant]
  7. LEVOFLOXACIN [Concomitant]
  8. VALACYCLOVIR HCL [Concomitant]
  9. HALOPURINOL [Concomitant]
  10. CEFTRIAXONE [Concomitant]
  11. RITUXIMAB [Concomitant]

REACTIONS (7)
  - ATRIAL FIBRILLATION [None]
  - ATRIAL FLUTTER [None]
  - CHILLS [None]
  - DIARRHOEA [None]
  - FEBRILE NEUTROPENIA [None]
  - WEIGHT DECREASED [None]
  - WHITE BLOOD CELL COUNT DECREASED [None]
